FAERS Safety Report 4849945-9 (Version None)
Quarter: 2005Q4

REPORT INFORMATION
  Report Type: 
  Country: None (occurrence: None)
  Receive Date: 20051101
  Receipt Date: 20050830
  Transmission Date: 20060501
  Serious: Yes (Other)
  Sender: FDA-Public Use
  Company Number: 200511703BBE

PATIENT
  Age: 66 Year
  Sex: Female
  Weight: 88.4514 kg

DRUGS (10)
  1. GAMUNEX [Suspect]
     Indication: MYOSITIS
     Dosage: 90 G, TOTAL DAILY, INTRAVENOUS
     Route: 042
     Dates: start: 20050307
  2. PREDNISONE [Concomitant]
  3. TIAZAC [Concomitant]
  4. NEXIUM [Concomitant]
  5. ACTONEL [Concomitant]
  6. CALCIUM GLUCONATE [Concomitant]
  7. VITAMIN D [Concomitant]
  8. SEREVENT [Concomitant]
  9. SPIRIVA [Concomitant]
  10. MULTI-VITAMIN [Concomitant]

REACTIONS (6)
  - ANAPHYLACTOID REACTION [None]
  - DYSPHAGIA [None]
  - DYSPNOEA [None]
  - FLUSHING [None]
  - PRURITUS [None]
  - RASH [None]
